FAERS Safety Report 8259892-0 (Version None)
Quarter: 2012Q2

REPORT INFORMATION
  Report Type: 
  Country: None (occurrence: None)
  Receive Date: 20120404
  Receipt Date: 20120326
  Transmission Date: 20120825
  Serious: Yes (Other)
  Sender: FDA-Public Use
  Company Number: JP-GLAXOSMITHKLINE-B0792338A

PATIENT

DRUGS (3)
  1. LAMICTAL [Suspect]
     Indication: DEPRESSION
     Route: 048
  2. LAMICTAL [Suspect]
     Route: 048
  3. UNKNOWN DRUG [Concomitant]
     Route: 065

REACTIONS (4)
  - ULCERATIVE KERATITIS [None]
  - SUICIDAL IDEATION [None]
  - STEVENS-JOHNSON SYNDROME [None]
  - DEPRESSION [None]
